APPROVED DRUG PRODUCT: DIFFERIN
Active Ingredient: ADAPALENE
Strength: 0.1%
Dosage Form/Route: LOTION;TOPICAL
Application: N022502 | Product #001
Applicant: GALDERMA LABORATORIES LP
Approved: Mar 17, 2010 | RLD: Yes | RS: No | Type: DISCN

PATENTS:
Patent 8435502 | Expires: Sep 15, 2026
Patent 8709392 | Expires: Sep 15, 2026
Patent 7998467 | Expires: May 31, 2028